FAERS Safety Report 17638563 (Version 1)
Quarter: 2020Q2

REPORT INFORMATION
  Report Type: Spontaneous
  Country: US (occurrence: US)
  Receive Date: 20200407
  Receipt Date: 20200407
  Transmission Date: 20200713
  Serious: No
  Sender: FDA-Public Use
  Company Number: US-ACCORD-170159

PATIENT
  Age: 51 Year
  Sex: Female

DRUGS (1)
  1. SIMVASTATIN. [Suspect]
     Active Substance: SIMVASTATIN
     Indication: PRODUCT USED FOR UNKNOWN INDICATION

REACTIONS (21)
  - Nervousness [Unknown]
  - Decreased appetite [Unknown]
  - Renal disorder [Unknown]
  - Abdominal distension [Unknown]
  - Asthma [Unknown]
  - Headache [Unknown]
  - Blood pressure decreased [Unknown]
  - Nausea [Unknown]
  - Groin pain [Unknown]
  - Hyperhidrosis [Unknown]
  - Fluid retention [Unknown]
  - Hormone level abnormal [Unknown]
  - Flatulence [Unknown]
  - Weight fluctuation [Unknown]
  - Tinnitus [Unknown]
  - Anxiety [Unknown]
  - Blood testosterone abnormal [Unknown]
  - Amenorrhoea [Unknown]
  - Sinus disorder [Unknown]
  - Dizziness [Unknown]
  - Blood glucose increased [Unknown]
